FAERS Safety Report 11004721 (Version 3)
Quarter: 2015Q2

REPORT INFORMATION
  Report Type: Spontaneous
  Country: GB (occurrence: GB)
  Receive Date: 20150409
  Receipt Date: 20150430
  Transmission Date: 20150821
  Serious: Yes (Death, Life-Threatening, Other)
  Sender: FDA-Public Use
  Company Number: GB-PFIZER INC-2015122066

PATIENT
  Age: 34 Year
  Sex: Male
  Weight: 82.5 kg

DRUGS (1)
  1. NEURONTIN [Suspect]
     Active Substance: GABAPENTIN
     Indication: ANALGESIC THERAPY
     Dosage: 100 MG, UNK
     Route: 048

REACTIONS (5)
  - Completed suicide [Fatal]
  - Major depression [Unknown]
  - Feeling abnormal [Unknown]
  - Suicidal behaviour [Not Recovered/Not Resolved]
  - Personality change [Unknown]

NARRATIVE: CASE EVENT DATE: 20141119
